FAERS Safety Report 8012014-3 (Version None)
Quarter: 2011Q4

REPORT INFORMATION
  Report Type: 
  Country: None (occurrence: None)
  Receive Date: 20111228
  Receipt Date: 20111219
  Transmission Date: 20120403
  Serious: Yes (Other)
  Sender: FDA-Public Use
  Company Number: JP-GLAXOSMITHKLINE-B0767956A

PATIENT
  Sex: Male
  Weight: 80 kg

DRUGS (2)
  1. DUTASTERIDE [Suspect]
     Indication: BENIGN PROSTATIC HYPERPLASIA
     Dosage: .5MG PER DAY
     Route: 048
     Dates: start: 20110201, end: 20111203
  2. URSO 250 [Concomitant]
     Dosage: 1TAB THREE TIMES PER DAY
     Route: 048

REACTIONS (8)
  - ALANINE AMINOTRANSFERASE INCREASED [None]
  - LIVER FUNCTION TEST ABNORMAL [None]
  - HEPATIC FUNCTION ABNORMAL [None]
  - ASPARTATE AMINOTRANSFERASE INCREASED [None]
  - GAMMA-GLUTAMYLTRANSFERASE INCREASED [None]
  - ANTINUCLEAR ANTIBODY INCREASED [None]
  - BLOOD BILIRUBIN INCREASED [None]
  - HEPATITIS [None]
